FAERS Safety Report 6522383-9 (Version None)
Quarter: 2009Q4

REPORT INFORMATION
  Report Type: 
  Country: None (occurrence: None)
  Receive Date: 20091222
  Receipt Date: 20091208
  Transmission Date: 20100525
  Serious: Yes (Other)
  Sender: FDA-Public Use
  Company Number: 572316

PATIENT
  Age: 23 Year
  Sex: Female
  Weight: 58.9676 kg

DRUGS (2)
  1. BONINE [Suspect]
     Dosage: ONE TABLET
     Dates: start: 20091206, end: 20091206
  2. UNSPECIFIED ORAL CONTRACEPTIVE [Concomitant]

REACTIONS (8)
  - APNOEA [None]
  - CONVULSION [None]
  - COUGH [None]
  - CYANOSIS [None]
  - FEELING ABNORMAL [None]
  - LOSS OF CONSCIOUSNESS [None]
  - PALLOR [None]
  - VOMITING [None]
